FAERS Safety Report 22586172 (Version 1)
Quarter: 2023Q2

REPORT INFORMATION
  Report Type: Spontaneous
  Country: CN (occurrence: CN)
  Receive Date: 20230610
  Receipt Date: 20230610
  Transmission Date: 20230722
  Serious: Yes (Other)
  Sender: FDA-Public Use
  Company Number: CN-SUN PHARMACEUTICAL INDUSTRIES LTD-2023R1-394062

PATIENT
  Age: 50 Year
  Sex: Male

DRUGS (2)
  1. GEMCITABINE [Suspect]
     Active Substance: GEMCITABINE
     Indication: Neoplasm malignant
     Dosage: 1250 MILLIGRAM/SQ. METER 1 CYCLE
     Route: 065
  2. SINTILIMAB [Concomitant]
     Active Substance: SINTILIMAB
     Indication: Neoplasm malignant
     Dosage: UNK 200MG 1 CYCLE
     Route: 065

REACTIONS (3)
  - Neutropenia [Unknown]
  - Rash [Unknown]
  - Decreased appetite [Unknown]
